FAERS Safety Report 12843903 (Version 2)
Quarter: 2016Q4

REPORT INFORMATION
  Report Type: Spontaneous
  Country: AR (occurrence: AR)
  Receive Date: 20161013
  Receipt Date: 20161018
  Transmission Date: 20170207
  Serious: Yes (Hospitalization, Other)
  Sender: FDA-Public Use
  Company Number: AR-009507513-1610ARG004973

PATIENT
  Age: 83 Year
  Sex: Male

DRUGS (2)
  1. KEYTRUDA [Suspect]
     Active Substance: PEMBROLIZUMAB
     Indication: MALIGNANT MELANOMA
     Dosage: FIRST DOSE UNK
     Route: 042
     Dates: start: 20161001
  2. METHADONE HYDROCHLORIDE. [Concomitant]
     Active Substance: METHADONE HYDROCHLORIDE
     Indication: ARTHRALGIA
     Dosage: UNK
     Route: 065
     Dates: start: 2016

REACTIONS (7)
  - Hypertension [Unknown]
  - Acute myocardial infarction [Unknown]
  - Pleural effusion [Unknown]
  - Psychomotor hyperactivity [Unknown]
  - Rhabdomyolysis [Recovering/Resolving]
  - Cardiac failure [Unknown]
  - Cerebral hypoperfusion [Unknown]

NARRATIVE: CASE EVENT DATE: 201610
